FAERS Safety Report 8453907-2 (Version None)
Quarter: 2012Q2

REPORT INFORMATION
  Report Type: 
  Country: None (occurrence: None)
  Receive Date: 20120620
  Receipt Date: 20120611
  Transmission Date: 20120825
  Serious: Yes (Other)
  Sender: FDA-Public Use
  Company Number: US-ASTRAZENECA-2012SE39289

PATIENT
  Age: 51 Year
  Sex: Female

DRUGS (3)
  1. SEROQUEL [Suspect]
     Dosage: GENERIC
     Route: 048
  2. SEROQUEL [Suspect]
     Route: 048
  3. KLONOPIN [Concomitant]

REACTIONS (13)
  - SUICIDAL IDEATION [None]
  - BELLIGERENCE [None]
  - DRUG DOSE OMISSION [None]
  - HEADACHE [None]
  - AGGRESSION [None]
  - TENSION [None]
  - NAUSEA [None]
  - DISTURBANCE IN ATTENTION [None]
  - HOMICIDAL IDEATION [None]
  - WEIGHT INCREASED [None]
  - WITHDRAWAL SYNDROME [None]
  - INSOMNIA [None]
  - ANGER [None]
